FAERS Safety Report 5975455-1 (Version None)
Quarter: 2008Q4

REPORT INFORMATION
  Report Type: 
  Country: None (occurrence: None)
  Receive Date: 20081202
  Receipt Date: 20081118
  Transmission Date: 20090506
  Serious: Yes (Hospitalization)
  Sender: FDA-Public Use
  Company Number: BE-BIOGENIDEC-2008BI031134

PATIENT
  Sex: Female

DRUGS (4)
  1. AVONEX [Suspect]
     Indication: RELAPSING-REMITTING MULTIPLE SCLEROSIS
     Dates: start: 19990101, end: 20080101
  2. TEGRETOL [Concomitant]
     Dosage: DOSE UNIT:
     Route: 048
  3. MAGNESPASMYL [Concomitant]
     Route: 048
  4. REDOMEX [Concomitant]
     Route: 048

REACTIONS (2)
  - LUNG NEOPLASM MALIGNANT [None]
  - SLEEP DISORDER [None]
